FAERS Safety Report 10064791 (Version 1)
Quarter: 2014Q2

REPORT INFORMATION
  Report Type: Spontaneous
  Country: US (occurrence: None)
  Receive Date: 20140404
  Receipt Date: 20140404
  Transmission Date: 20141212
  Serious: Yes (Hospitalization)
  Sender: FDA-Public Use
  Company Number: UTC-046415

PATIENT
  Age: 53 Year
  Sex: Female

DRUGS (1)
  1. REMODULIN (INJECTION FOR INFUSION) (TREPROSTINIL SODIUM) [Suspect]
     Indication: PULMONARY ARTERIAL HYPERTENSION
     Dosage: UNITS NOT PROVIDED (0.32 1 IN 1 MIN)
     Route: 058
     Dates: start: 20121220, end: 201401

REACTIONS (1)
  - Platelet count increased [None]
